FAERS Safety Report 23843266 (Version 1)
Quarter: 2024Q2

REPORT INFORMATION
  Report Type: Report from Study
  Country: IN (occurrence: IN)
  Receive Date: 20240510
  Receipt Date: 20240510
  Transmission Date: 20240716
  Serious: Yes (Death, Hospitalization)
  Sender: FDA-Public Use
  Company Number: IN-002147023-NVSC2024IN097774

PATIENT

DRUGS (3)
  1. RUXOLITINIB [Suspect]
     Active Substance: RUXOLITINIB
     Indication: Primary myelofibrosis
     Dosage: 25 MG, QD
     Route: 048
     Dates: start: 20230210
  2. RUXOLITINIB [Suspect]
     Active Substance: RUXOLITINIB
     Dosage: 10 MG, BID
     Route: 065
     Dates: start: 20230503
  3. RUXOLITINIB [Suspect]
     Active Substance: RUXOLITINIB
     Dosage: 15 MG IN MORNING AND 10 MG IN EVENING
     Route: 048
     Dates: start: 20230703

REACTIONS (2)
  - Product use issue [Unknown]
  - Haematemesis [Fatal]

NARRATIVE: CASE EVENT DATE: 20230703
